FAERS Safety Report 19670883 (Version 1)
Quarter: 2021Q3

REPORT INFORMATION
  Report Type: Spontaneous
  Country: DE (occurrence: DE)
  Receive Date: 20210806
  Receipt Date: 20210806
  Transmission Date: 20211014
  Serious: Yes (Hospitalization)
  Sender: FDA-Public Use
  Company Number: NVSC2021DE175083

PATIENT
  Age: 70 Year
  Sex: Female

DRUGS (6)
  1. LEVOTHYROXINUM NATRICUM [Concomitant]
     Indication: PRODUCT USED FOR UNKNOWN INDICATION
     Dosage: 75 ?G, 1?0?0?0, TABLETTEN
     Route: 048
  2. CANDESARTAN. [Concomitant]
     Active Substance: CANDESARTAN
     Indication: PRODUCT USED FOR UNKNOWN INDICATION
     Dosage: 16 MG, 1?0?0?0, TABLETTEN
     Route: 048
  3. CLINDAMYCIN. [Suspect]
     Active Substance: CLINDAMYCIN
     Indication: PRODUCT USED FOR UNKNOWN INDICATION
     Dosage: EINGENOMMEN BIS SIEBTEN MAI, TABLETTEN
     Route: 048
  4. METOPROLOL. [Concomitant]
     Active Substance: METOPROLOL
     Indication: PRODUCT USED FOR UNKNOWN INDICATION
     Dosage: 95 MG, 1?0?1?0, TABLETTEN
     Route: 048
  5. AMLODIPINE [Concomitant]
     Active Substance: AMLODIPINE BESYLATE
     Indication: PRODUCT USED FOR UNKNOWN INDICATION
     Dosage: 5 MG, 1?0?0?0, TABLETTEN
     Route: 048
  6. ACETYLSALICYLSAEURE [Concomitant]
     Active Substance: ASPIRIN
     Indication: PRODUCT USED FOR UNKNOWN INDICATION
     Dosage: 100 MG, 1?0?0?0, TABLETTEN
     Route: 048

REACTIONS (4)
  - General physical health deterioration [Recovering/Resolving]
  - Fatigue [Recovering/Resolving]
  - Chills [Recovering/Resolving]
  - Diarrhoea [Recovering/Resolving]
